FAERS Safety Report 5152868-1 (Version None)
Quarter: 2006Q4

REPORT INFORMATION
  Report Type: 
  Country: None (occurrence: None)
  Receive Date: 20061117
  Receipt Date: 20061106
  Transmission Date: 20070319
  Serious: Yes (Hospitalization)
  Sender: FDA-Public Use
  Company Number: PHNU2006DE03624

PATIENT
  Sex: Female

DRUGS (15)
  1. LOCOL [Suspect]
     Indication: HYPERLIPIDAEMIA
     Dosage: 40 MG DAILY
     Route: 048
     Dates: start: 20060301
  2. CITALOPRAM HYDROBROMIDE [Suspect]
     Dosage: 40 MG DAILY
     Route: 048
     Dates: end: 20060919
  3. CITALOPRAM HYDROBROMIDE [Suspect]
     Dosage: 60 MG DAILY
     Route: 048
     Dates: start: 20060920
  4. NEUROCIL [Suspect]
     Dosage: 200 MG DAILY
     Route: 048
  5. TRIMIPRAMINE MALEATE [Suspect]
     Dosage: 150 MG DAILY
     Route: 048
  6. TAXILAN [Suspect]
     Dosage: 500 MG DAILY
     Route: 048
     Dates: end: 20060926
  7. TAXILAN [Suspect]
     Dosage: 250 MG DAILY
     Route: 048
     Dates: start: 20060928
  8. MST UNICONTINUS [Suspect]
     Dosage: 60 MG DAILY
     Route: 048
     Dates: start: 20060919, end: 20060922
  9. BELOC ZOK [Suspect]
     Dosage: 95 MG DAILY
     Route: 048
     Dates: start: 20060301
  10. ACETYLSALICYLIC ACID SRT [Concomitant]
     Dosage: 100 MG DAILY
     Route: 048
     Dates: start: 20060301
  11. TOREM [Concomitant]
     Dosage: 10 MG DAILY
     Route: 048
     Dates: start: 20060301
  12. HYDROCHLOROTHIAZID [Concomitant]
     Dosage: 25 MG DAILY
     Route: 048
     Dates: start: 20060301
  13. COVERSUM [Concomitant]
     Dosage: 2 MG DAILY
     Route: 048
     Dates: start: 20060301
  14. NEXIUM [Concomitant]
     Dosage: 40 MG DAILY
     Route: 048
     Dates: start: 20060301
  15. GYNAMON [Concomitant]
     Dosage: 1 DF, QD
     Route: 048
     Dates: start: 20060301

REACTIONS (14)
  - BODY TEMPERATURE INCREASED [None]
  - BRADYPHRENIA [None]
  - C-REACTIVE PROTEIN INCREASED [None]
  - CEREBRAL DISORDER [None]
  - CONVULSION [None]
  - DISORIENTATION [None]
  - DRUG INTERACTION [None]
  - ELECTROENCEPHALOGRAM ABNORMAL [None]
  - ENURESIS [None]
  - LOSS OF CONSCIOUSNESS [None]
  - MUSCLE TWITCHING [None]
  - PALLOR [None]
  - TREMOR [None]
  - WHITE BLOOD CELL COUNT INCREASED [None]
